FAERS Safety Report 18341212 (Version 2)
Quarter: 2021Q1

REPORT INFORMATION
  Report Type: Other
  Country: ZA (occurrence: ZA)
  Receive Date: 20201003
  Receipt Date: 20210130
  Transmission Date: 20210419
  Serious: Yes (Other)
  Sender: FDA-Public Use
  Company Number: ZA-MACLEODS PHARMACEUTICALS US LTD-MAC2020028229

PATIENT

DRUGS (2)
  1. EMTRICITABINE/TENOFOVIR DISOPROXIL [Suspect]
     Active Substance: EMTRICITABINE\TENOFOVIR DISOPROXIL
     Indication: HIV INFECTION
     Dosage: UNK, 1 COURSE, PRIOR TO CONCEPTION, DESCOVY (EMTRICITABINE/TENOFOVIR DISOPROXIL)
     Route: 065
     Dates: start: 20171113
  2. TIVICAY [Suspect]
     Active Substance: DOLUTEGRAVIR SODIUM
     Indication: HIV INFECTION
     Dosage: UNK, 1 COURSE, PRIOR TO CONCEPTION
     Route: 065
     Dates: start: 20171113

REACTIONS (2)
  - Maternal exposure during pregnancy [Unknown]
  - Abortion induced [Unknown]

NARRATIVE: CASE EVENT DATE: 20200814
